FAERS Safety Report 5854948-1 (Version None)
Quarter: 2008Q3

REPORT INFORMATION
  Report Type: 
  Country: None (occurrence: None)
  Receive Date: 20080822
  Receipt Date: 20080411
  Transmission Date: 20090109
  Serious: No
  Sender: FDA-Public Use
  Company Number: US-ABBOTT-08P-163-0446795-00

PATIENT
  Sex: Female
  Weight: 54.934 kg

DRUGS (3)
  1. SYNTHROID [Suspect]
     Indication: HYPOTHYROIDISM
     Route: 048
     Dates: start: 20071101, end: 20080405
  2. SYNTHROID [Suspect]
     Route: 048
     Dates: start: 20080407
  3. LEVOTHYROXINE SODIUM [Suspect]
     Indication: HYPOTHYROIDISM
     Dates: start: 20080405, end: 20080406

REACTIONS (5)
  - PRURITUS [None]
  - SENSORY DISTURBANCE [None]
  - SWELLING FACE [None]
  - SWOLLEN TONGUE [None]
  - UNEVALUABLE EVENT [None]
